FAERS Safety Report 8936199 (Version 2)
Quarter: 2013Q1

REPORT INFORMATION
  Report Type: Spontaneous
  Country: US (occurrence: US)
  Receive Date: 20121130
  Receipt Date: 20130221
  Transmission Date: 20140127
  Serious: Yes (Death, Hospitalization, Other)
  Sender: FDA-Public Use
  Company Number: US-BIOGENIDEC-2012BI054974

PATIENT
  Age: 81 Year
  Sex: Male

DRUGS (1)
  1. AVONEX [Suspect]
     Indication: MULTIPLE SCLEROSIS
     Route: 030
     Dates: start: 20030326, end: 20121106

REACTIONS (3)
  - Multiple sclerosis [Fatal]
  - Sepsis [Unknown]
  - General physical health deterioration [Not Recovered/Not Resolved]
